FAERS Safety Report 8995514 (Version 1)
Quarter: 2013Q1

REPORT INFORMATION
  Report Type: Spontaneous
  Country: US (occurrence: US)
  Receive Date: 20130103
  Receipt Date: 20130103
  Transmission Date: 20140127
  Serious: No
  Sender: FDA-Public Use
  Company Number: US-ABBOTT-12P-163-0904516-00

PATIENT
  Age: 65 Year
  Sex: Female
  Weight: 59.02 kg

DRUGS (2)
  1. SYNTHROID [Suspect]
     Indication: HYPOTHYROIDISM
     Dosage: BEFORE BEDTIME
     Dates: start: 201201
  2. UNKNOWN MEDICATION [Concomitant]
     Indication: HYPERTENSION

REACTIONS (6)
  - Feeling abnormal [Unknown]
  - Erythema [Unknown]
  - Flushing [Unknown]
  - Dizziness [Recovered/Resolved]
  - Chest pain [Recovered/Resolved]
  - Alopecia [Not Recovered/Not Resolved]
